FAERS Safety Report 7476619-0 (Version None)
Quarter: 2011Q2

REPORT INFORMATION
  Report Type: 
  Country: None (occurrence: None)
  Receive Date: 20110512
  Receipt Date: 20110506
  Transmission Date: 20111010
  Serious: Yes (Hospitalization, Other)
  Sender: FDA-Public Use
  Company Number: CA-ABBOTT-11P-028-0724351-00

PATIENT
  Sex: Female
  Weight: 68.1 kg

DRUGS (10)
  1. VENTOLIN [Concomitant]
     Indication: ASTHMA
     Dates: start: 20030101
  2. ONDANSETRON [Concomitant]
     Indication: CROHN'S DISEASE
     Route: 048
     Dates: start: 20040101
  3. HUMIRA [Suspect]
     Indication: CROHN'S DISEASE
     Dates: start: 20070329, end: 20110422
  4. LORAZEPAM [Concomitant]
     Indication: ANXIETY
     Route: 048
     Dates: start: 20040101
  5. PANTOLOC [Concomitant]
     Indication: HIATUS HERNIA
     Dates: start: 20030101
  6. APO-PROCHLORAZINE [Concomitant]
     Indication: CROHN'S DISEASE
     Route: 048
     Dates: start: 19980101
  7. CIPROFLOXACIN [Concomitant]
     Indication: PNEUMONIA
     Route: 048
     Dates: start: 20110401
  8. HUMIRA [Suspect]
     Indication: ANKYLOSING SPONDYLITIS
     Route: 058
     Dates: end: 20060301
  9. CALCIUM [Concomitant]
     Indication: OSTEOPOROSIS
     Route: 048
     Dates: start: 19980101
  10. VITAMIN D [Concomitant]
     Indication: OSTEOPOROSIS
     Route: 048
     Dates: start: 19980101

REACTIONS (17)
  - VITAMIN B12 DECREASED [None]
  - GASTROINTESTINAL DISORDER [None]
  - FEELING HOT [None]
  - PHYSICAL ASSAULT [None]
  - ERYTHEMA [None]
  - CROHN'S DISEASE [None]
  - EPILEPSY [None]
  - DEPRESSION [None]
  - ANXIETY [None]
  - INFECTION [None]
  - STOMACH MASS [None]
  - HEAD INJURY [None]
  - CONVULSION [None]
  - PAIN [None]
  - PNEUMONIA [None]
  - ASTHMA [None]
  - ANKYLOSING SPONDYLITIS [None]
